FAERS Safety Report 7369318-7 (Version None)
Quarter: 2011Q1

REPORT INFORMATION
  Report Type: 
  Country: None (occurrence: None)
  Receive Date: 20110323
  Receipt Date: 20110316
  Transmission Date: 20110831
  Serious: Yes (Hospitalization)
  Sender: FDA-Public Use
  Company Number: B0706121A

PATIENT
  Sex: Male

DRUGS (5)
  1. LEXOMIL [Concomitant]
     Dosage: 6MG PER DAY
     Route: 048
     Dates: start: 20100921
  2. DEROXAT [Suspect]
     Dosage: 20MG PER DAY
     Route: 048
     Dates: start: 20100921
  3. LIPANTHYL [Concomitant]
     Dosage: 160MG PER DAY
     Route: 048
     Dates: start: 20100921
  4. ZALDIAR [Suspect]
     Dosage: 1UNIT THREE TIMES PER DAY
     Route: 048
     Dates: start: 20101115, end: 20101130
  5. MEDROL [Concomitant]
     Route: 048
     Dates: start: 20101115, end: 20101122

REACTIONS (4)
  - AMNESIA [None]
  - HALLUCINATIONS, MIXED [None]
  - ABNORMAL BEHAVIOUR [None]
  - ALTERED STATE OF CONSCIOUSNESS [None]
